FAERS Safety Report 10424302 (Version 1)
Quarter: 2014Q3

REPORT INFORMATION
  Report Type: Spontaneous
  Country: US (occurrence: None)
  Receive Date: 20140722
  Receipt Date: 20140722
  Transmission Date: 20150326
  Serious: No
  Sender: FDA-Public Use
  Company Number: 163-10004-14044462

PATIENT
  Age: 57 Year
  Sex: Male
  Weight: 99.79 kg

DRUGS (6)
  1. SULFADINE (SULFADIMIDINE) [Concomitant]
  2. PREDNISONE. [Concomitant]
     Active Substance: PREDNISONE
  3. CELEBREX [Concomitant]
     Active Substance: CELECOXIB
  4. NEXIUM [Concomitant]
     Active Substance: ESOMEPRAZOLE MAGNESIUM
  5. GABAPENTIN. [Concomitant]
     Active Substance: GABAPENTIN
  6. OTEZLA [Suspect]
     Active Substance: APREMILAST
     Indication: PSORIATIC ARTHROPATHY
     Dosage: 1 IN 1 D
     Route: 048
     Dates: start: 20140419

REACTIONS (4)
  - Erythema [None]
  - Pruritus [None]
  - Skin discolouration [None]
  - Rash [None]

NARRATIVE: CASE EVENT DATE: 201404
